FAERS Safety Report 18593317 (Version 8)
Quarter: 2021Q4

REPORT INFORMATION
  Report Type: Spontaneous
  Country: US (occurrence: None)
  Receive Date: 20201209
  Receipt Date: 20211129
  Transmission Date: 20220303
  Serious: Yes (Hospitalization, Other)
  Sender: FDA-Public Use
  Company Number: US-HIKMA PHARMACEUTICALS USA INC.-US-H14001-20-05437

PATIENT
  Sex: Female

DRUGS (9)
  1. CAPECITABINE [Suspect]
     Active Substance: CAPECITABINE
     Indication: Product used for unknown indication
     Dosage: UNKNOWN
     Route: 065
  2. DEXAMETHASONE [Suspect]
     Active Substance: DEXAMETHASONE
     Indication: Product used for unknown indication
     Dosage: UNKNOWN
     Route: 065
  3. TUKYSA [Suspect]
     Active Substance: TUCATINIB
     Indication: Breast cancer
     Dosage: UNKNOWN
     Route: 065
  4. TUKYSA [Suspect]
     Active Substance: TUCATINIB
     Dosage: UNKNOWN
     Route: 065
  5. TUKYSA [Suspect]
     Active Substance: TUCATINIB
     Dosage: UNKNOWN
     Route: 065
  6. TUKYSA [Suspect]
     Active Substance: TUCATINIB
     Dosage: UNKNOWN
     Route: 065
  7. TUKYSA [Suspect]
     Active Substance: TUCATINIB
     Dosage: UNKNOWN
     Route: 065
  8. TUKYSA [Suspect]
     Active Substance: TUCATINIB
     Dosage: UNKNOWN
     Route: 065
  9. TUKYSA [Suspect]
     Active Substance: TUCATINIB
     Dosage: UNKNOWN
     Route: 065

REACTIONS (26)
  - Diarrhoea [Unknown]
  - Weight increased [Unknown]
  - Insomnia [Unknown]
  - Joint injury [Unknown]
  - Fall [Unknown]
  - Balance disorder [Unknown]
  - Loss of consciousness [Unknown]
  - Depressed mood [Unknown]
  - Hyponatraemia [Unknown]
  - Noninfective encephalitis [Unknown]
  - Liver function test increased [Unknown]
  - Urinary tract infection [Unknown]
  - Haemoglobin decreased [Unknown]
  - Platelet count increased [Unknown]
  - Mean platelet volume decreased [Unknown]
  - Infection [Unknown]
  - Liver injury [Unknown]
  - Cushingoid [Unknown]
  - Fatigue [Unknown]
  - Tumour hyperprogression [Unknown]
  - Weight decreased [Unknown]
  - Dizziness [Unknown]
  - Tremor [Unknown]
  - Hypertension [Unknown]
  - Headache [Unknown]
  - Bacterial infection [Unknown]
